FAERS Safety Report 9692575 (Version 1)
Quarter: 2013Q4

REPORT INFORMATION
  Report Type: Spontaneous
  Country: US (occurrence: US)
  Receive Date: 20131118
  Receipt Date: 20131118
  Transmission Date: 20140711
  Serious: No
  Sender: FDA-Public Use
  Company Number: US-PFIZER INC-2013327612

PATIENT
  Age: 53 Year
  Sex: Female
  Weight: 109 kg

DRUGS (5)
  1. NEURONTIN [Suspect]
     Indication: NERVE INJURY
     Dosage: 400 MG, 4X/DAY
  2. NEURONTIN [Suspect]
     Indication: PERIPHERAL NERVE INJURY
  3. SEROQUEL [Concomitant]
     Indication: DEPRESSION
     Dosage: 300 MG, 2X/DAY
  4. PROZAC [Concomitant]
     Indication: DEPRESSION
     Dosage: 10 MG, DAILY
  5. LEVOTHYROXINE [Concomitant]
     Indication: THYROID DISORDER
     Dosage: 75 UG, DAILY

REACTIONS (2)
  - Off label use [Unknown]
  - Drug ineffective for unapproved indication [Unknown]
